FAERS Safety Report 23067188 (Version 1)
Quarter: 2023Q4

REPORT INFORMATION
  Report Type: Spontaneous
  Country: US (occurrence: US)
  Receive Date: 20231016
  Receipt Date: 20231016
  Transmission Date: 20240109
  Serious: No
  Sender: FDA-Public Use
  Company Number: US-ELI_LILLY_AND_COMPANY-US202310006074

PATIENT
  Sex: Male

DRUGS (3)
  1. VERZENIO [Interacting]
     Active Substance: ABEMACICLIB
     Indication: Rectosigmoid cancer
     Dosage: UNK UNK, UNKNOWN
     Route: 065
  2. VERZENIO [Interacting]
     Active Substance: ABEMACICLIB
     Dosage: 100 MG, BID
     Route: 048
  3. ADAGRASIB [Interacting]
     Active Substance: ADAGRASIB
     Indication: Product used for unknown indication
     Dosage: UNK UNK, UNKNOWN
     Route: 065

REACTIONS (2)
  - Off label use [Unknown]
  - Drug interaction [Unknown]
